FAERS Safety Report 10872527 (Version 1)
Quarter: 2015Q1

REPORT INFORMATION
  Report Type: Spontaneous
  Country: ES (occurrence: ES)
  Receive Date: 20150227
  Receipt Date: 20150227
  Transmission Date: 20150721
  Serious: Yes (Hospitalization)
  Sender: FDA-Public Use
  Company Number: ES-ROCHE-1541471

PATIENT
  Age: 39 Year
  Sex: Female

DRUGS (3)
  1. RIVOTRIL [Suspect]
     Active Substance: CLONAZEPAM
     Indication: SUICIDE ATTEMPT
     Dosage: 0.5MG
     Route: 048
     Dates: start: 20140716, end: 20140716
  2. KEPPRA [Suspect]
     Active Substance: LEVETIRACETAM
     Indication: SUICIDE ATTEMPT
     Dosage: KEPPRA 500 MG COMPRIMIDOS RECUBIERTOS CON PELICULA, 100 COMPRIMIDOS
     Route: 048
     Dates: start: 20140716, end: 20140716
  3. OLANZAPINA [Suspect]
     Active Substance: OLANZAPINE
     Indication: SUICIDE ATTEMPT
     Route: 048
     Dates: start: 20140716, end: 20140716

REACTIONS (1)
  - Depressed level of consciousness [Recovering/Resolving]

NARRATIVE: CASE EVENT DATE: 20140716
